FAERS Safety Report 10100425 (Version 1)
Quarter: 2014Q2

REPORT INFORMATION
  Report Type: Report from Study
  Country: FR (occurrence: FR)
  Receive Date: 20140423
  Receipt Date: 20140423
  Transmission Date: 20141212
  Serious: Yes (Death, Hospitalization)
  Sender: FDA-Public Use
  Company Number: FR-BRISTOL-MYERS SQUIBB COMPANY-20622601

PATIENT
  Age: 79 Year
  Sex: Male

DRUGS (5)
  1. ORENCIA [Suspect]
     Indication: RHEUMATOID ARTHRITIS
     Route: 042
     Dates: start: 20120626, end: 20131118
  2. CO-RENITEC [Concomitant]
     Dosage: 1 TABLET : 1 DAY
     Route: 048
     Dates: end: 2013
  3. AMLOR [Concomitant]
     Route: 048
     Dates: end: 2013
  4. METOJECT [Concomitant]
     Indication: RHEUMATOID ARTHRITIS
     Route: 058
     Dates: end: 2013
  5. PLAVIX [Concomitant]
     Indication: ISCHAEMIC CARDIOMYOPATHY
     Route: 048
     Dates: end: 2013

REACTIONS (11)
  - Multi-organ failure [Fatal]
  - Aortic dissection [Unknown]
  - Renal failure acute [Unknown]
  - Blood creatine phosphokinase increased [Unknown]
  - Pulmonary embolism [Unknown]
  - Cerebrovascular accident [Unknown]
  - Pneumothorax [Unknown]
  - Arrhythmia supraventricular [Unknown]
  - Atrial fibrillation [Unknown]
  - Pulmonary arterial hypertension [Unknown]
  - Candida infection [Unknown]
